FAERS Safety Report 12439296 (Version 1)
Quarter: 2016Q2

REPORT INFORMATION
  Report Type: Spontaneous
  Country: US (occurrence: US)
  Receive Date: 20160606
  Receipt Date: 20160606
  Transmission Date: 20160815
  Serious: No
  Sender: FDA-Public Use
  Company Number: US-BAYER-2016-110686

PATIENT
  Age: 34 Year
  Sex: Female

DRUGS (13)
  1. LORATADINE. [Suspect]
     Active Substance: LORATADINE
     Indication: AQUAGENIC PRURITUS
  2. CETIRIZINE [Concomitant]
     Active Substance: CETIRIZINE HYDROCHLORIDE
     Indication: AQUAGENIC PRURITUS
  3. RANITIDINE. [Concomitant]
     Active Substance: RANITIDINE
     Indication: AQUAGENIC PRURITUS
  4. HYDROXYZINE [Concomitant]
     Active Substance: HYDROXYZINE\HYDROXYZINE HYDROCHLORIDE
     Indication: URTICARIA AQUAGENIC
  5. HYDROXYZINE [Concomitant]
     Active Substance: HYDROXYZINE\HYDROXYZINE HYDROCHLORIDE
     Indication: AQUAGENIC PRURITUS
  6. MONTELUKAST [Concomitant]
     Active Substance: MONTELUKAST SODIUM
     Indication: AQUAGENIC PRURITUS
  7. CETIRIZINE [Concomitant]
     Active Substance: CETIRIZINE HYDROCHLORIDE
     Indication: URTICARIA AQUAGENIC
     Dosage: 10 MG, UNK
  8. LORATADINE. [Suspect]
     Active Substance: LORATADINE
     Indication: URTICARIA AQUAGENIC
     Dosage: 10 MG, UNK
  9. RANITIDINE. [Concomitant]
     Active Substance: RANITIDINE
     Indication: URTICARIA AQUAGENIC
     Dosage: 150 MG, BID
  10. PROPRANOLOL [Concomitant]
     Active Substance: PROPRANOLOL\PROPRANOLOL HYDROCHLORIDE
     Dosage: 30 MG, UNK
  11. MONTELUKAST [Concomitant]
     Active Substance: MONTELUKAST SODIUM
     Indication: URTICARIA AQUAGENIC
     Dosage: 10 MG, QD
  12. DIPHENHYDRAMINE. [Concomitant]
     Active Substance: DIPHENHYDRAMINE
     Indication: AQUAGENIC PRURITUS
  13. DIPHENHYDRAMINE. [Concomitant]
     Active Substance: DIPHENHYDRAMINE
     Indication: URTICARIA AQUAGENIC
     Dosage: 50 MG, HS

REACTIONS (1)
  - Drug ineffective [None]
